FAERS Safety Report 24295213 (Version 1)
Quarter: 2024Q3

REPORT INFORMATION
  Report Type: Spontaneous
  Country: US (occurrence: US)
  Receive Date: 20240907
  Receipt Date: 20240907
  Transmission Date: 20241017
  Serious: Yes (Hospitalization, Other)
  Sender: MERCK
  Company Number: US-009507513-2409USA000996

PATIENT
  Sex: Female

DRUGS (7)
  1. KEYTRUDA [Suspect]
     Active Substance: PEMBROLIZUMAB
     Indication: Non-small cell lung cancer
     Dosage: UNK UNK, Q3W
     Route: 042
     Dates: start: 20240711
  2. OMEPRAZOLE [Concomitant]
     Active Substance: OMEPRAZOLE
     Indication: Gastrooesophageal reflux disease
  3. SILEX [EUCALYPTUS GLOBULUS OIL;GUAIFENESIN;HERBAL EXTRACT NOS;ILLICIUM [Concomitant]
  4. PROLIA [Concomitant]
     Active Substance: DENOSUMAB
  5. MULTI VITAMIN [ASCORBIC ACID;FOLIC ACID;NICOTINIC ACID;PYRIDOXINE HYDR [Concomitant]
  6. CHOLECALCIFEROL [Concomitant]
     Active Substance: CHOLECALCIFEROL
  7. LACTO CALCIUM [Concomitant]

REACTIONS (4)
  - Cellulitis [Not Recovered/Not Resolved]
  - Immunodeficiency [Unknown]
  - Arthropod bite [Unknown]
  - Vomiting [Not Recovered/Not Resolved]

NARRATIVE: CASE EVENT DATE: 20240101
